FAERS Safety Report 11932679 (Version 2)
Quarter: 2016Q1

REPORT INFORMATION
  Report Type: Spontaneous
  Country: US (occurrence: US)
  Receive Date: 20160120
  Receipt Date: 20160128
  Transmission Date: 20160526
  Serious: Yes (Other)
  Sender: FDA-Public Use
  Company Number: US-ONY, INC.-1046680

PATIENT
  Age: 1 Day

DRUGS (1)
  1. INFASURF [Suspect]
     Active Substance: CALFACTANT
     Indication: NEONATAL RESPIRATORY DISTRESS SYNDROME
     Route: 039

REACTIONS (2)
  - Near drowning [Recovered/Resolved]
  - Drowning [None]

NARRATIVE: CASE EVENT DATE: 20151224
